FAERS Safety Report 25868503 (Version 1)
Quarter: 2025Q4

REPORT INFORMATION
  Report Type: Spontaneous
  Country: EU (occurrence: EU)
  Receive Date: 20251001
  Receipt Date: 20251001
  Transmission Date: 20260118
  Serious: Yes (Other)
  Sender: MYLAN
  Company Number: EU-MYLANLABS-2025M1083311

PATIENT
  Age: 28 Year
  Sex: Female

DRUGS (10)
  1. PREGABALIN [Suspect]
     Active Substance: PREGABALIN
     Indication: Neuralgia
     Dosage: UNK
  2. PREGABALIN [Suspect]
     Active Substance: PREGABALIN
     Indication: Sciatica
  3. FOLIC ACID [Suspect]
     Active Substance: FOLIC ACID
     Indication: Vitamin supplementation
     Dosage: UNK
  4. ENOXAPARIN [Suspect]
     Active Substance: ENOXAPARIN
     Indication: Thrombosis prophylaxis
     Dosage: UNK
  5. ALPELISIB [Suspect]
     Active Substance: ALPELISIB
     Indication: PIK3CA related overgrowth spectrum
     Dosage: 250 MILLIGRAM, QD (WAS STOPPED BEFORE PREGNANCY AND THEN LATER RESUMED AT SAME DOSAGE.)
  6. ALPELISIB [Suspect]
     Active Substance: ALPELISIB
     Dosage: 250 MILLIGRAM, QD (WAS STOPPED BEFORE PREGNANCY AND THEN LATER RESUMED AT SAME DOSAGE.)
  7. ALPELISIB [Suspect]
     Active Substance: ALPELISIB
     Dosage: 175 MILLIGRAM, QD (AFTER SKIN AND VAGINAL DRYNESS DOSE WAS REDUCED; AFTER REBOUND EFFECT DOSE WAS INCREASED))
  8. HUMAN RHO(D) IMMUNE GLOBULIN [Suspect]
     Active Substance: HUMAN RHO(D) IMMUNE GLOBULIN
     Indication: Rhesus incompatibility
     Dosage: UNK
  9. SIROLIMUS [Concomitant]
     Active Substance: SIROLIMUS
     Indication: Neuralgia
     Dosage: UNK
  10. SIROLIMUS [Concomitant]
     Active Substance: SIROLIMUS
     Indication: Sciatica

REACTIONS (7)
  - Rebound effect [Recovering/Resolving]
  - Condition aggravated [Recovering/Resolving]
  - PIK3CA related overgrowth spectrum [Recovering/Resolving]
  - Drug ineffective [Unknown]
  - Vulvovaginal dryness [Recovered/Resolved]
  - Dry skin [Recovered/Resolved]
  - Exposure during pregnancy [Unknown]
